FAERS Safety Report 9139068 (Version 1)
Quarter: 2013Q1

REPORT INFORMATION
  Report Type: Spontaneous
  Country: PT (occurrence: PT)
  Receive Date: 20130305
  Receipt Date: 20130305
  Transmission Date: 20140127
  Serious: Yes (Other)
  Sender: FDA-Public Use
  Company Number: PT-BRISTOL-MYERS SQUIBB COMPANY-17423922

PATIENT
  Age: 41 Year
  Sex: Female

DRUGS (1)
  1. STOCRIN TABS [Suspect]
     Indication: HIV INFECTION
     Dosage: FILM COATED TABS
     Route: 048
     Dates: start: 201202

REACTIONS (2)
  - Pregnancy [Recovered/Resolved]
  - Abortion induced [Unknown]
